FAERS Safety Report 5469991-4 (Version None)
Quarter: 2007Q3

REPORT INFORMATION
  Report Type: 
  Country: None (occurrence: None)
  Receive Date: 20070927
  Receipt Date: 20070917
  Transmission Date: 20080115
  Serious: Yes (Other)
  Sender: FDA-Public Use
  Company Number: US-GENENTECH-244066

PATIENT
  Age: 13 Month
  Sex: Male

DRUGS (1)
  1. NUTROPIN [Suspect]
     Indication: GROWTH RETARDATION
     Dosage: UNK, UNK
     Dates: start: 20070522

REACTIONS (1)
  - OCULAR VASCULAR DISORDER [None]
